FAERS Safety Report 6793910-1 (Version None)
Quarter: 2010Q2

REPORT INFORMATION
  Report Type: 
  Country: None (occurrence: None)
  Receive Date: 20100624
  Receipt Date: 20090618
  Transmission Date: 20101027
  Serious: Yes (Hospitalization, Other)
  Sender: FDA-Public Use
  Company Number: US-PFIZER INC-2009158492

PATIENT
  Sex: Female
  Weight: 92.517 kg

DRUGS (1)
  1. SUTENT [Suspect]
     Indication: THYROID CANCER METASTATIC
     Dosage: 37.5 MG, 1X/DAY
     Dates: start: 20081001

REACTIONS (2)
  - POST PROCEDURAL HAEMORRHAGE [None]
  - TRACHEO-OESOPHAGEAL FISTULA [None]
